FAERS Safety Report 5865384-6 (Version None)
Quarter: 2008Q3

REPORT INFORMATION
  Report Type: 
  Country: None (occurrence: None)
  Receive Date: 20080829
  Receipt Date: 20080728
  Transmission Date: 20090109
  Serious: No
  Sender: FDA-Public Use
  Company Number: US-ABBOTT-08P-163-0465796-00

PATIENT
  Sex: Female
  Weight: 95.34 kg

DRUGS (6)
  1. SIMCOR [Suspect]
     Indication: HIGH DENSITY LIPOPROTEIN DECREASED
     Dosage: 500/20 MG
     Route: 048
     Dates: start: 20080401, end: 20080727
  2. SIMCOR [Suspect]
     Indication: LOW DENSITY LIPOPROTEIN INCREASED
  3. SIMCOR [Suspect]
     Indication: BLOOD TRIGLYCERIDES INCREASED
  4. METOPROLOL TARTRATE [Concomitant]
     Indication: HYPERTENSION
     Route: 048
  5. ACETYLSALICYLIC ACID SRT [Concomitant]
     Indication: PROPHYLAXIS
     Route: 048
  6. NAPROXEN SODIUM [Concomitant]
     Indication: INFLAMMATION

REACTIONS (4)
  - BLOOD GLUCOSE INCREASED [None]
  - BURNING SENSATION [None]
  - FLUSHING [None]
  - GENERALISED ERYTHEMA [None]
